FAERS Safety Report 9953336 (Version 1)
Quarter: 2014Q1

REPORT INFORMATION
  Report Type: Spontaneous
  Country: US (occurrence: US)
  Receive Date: 20140304
  Receipt Date: 20140304
  Transmission Date: 20141002
  Serious: No
  Sender: FDA-Public Use
  Company Number: US-ABBVIE-13P-163-1079174-00

PATIENT
  Sex: Female

DRUGS (5)
  1. HUMIRA [Suspect]
     Indication: CROHN^S DISEASE
     Dates: start: 20120907
  2. IMURAN [Concomitant]
     Indication: CROHN^S DISEASE
  3. VITAMIN B12 [Concomitant]
  4. LORTAB [Concomitant]
  5. KLONOPIN [Concomitant]

REACTIONS (1)
  - Alopecia [Not Recovered/Not Resolved]
